FAERS Safety Report 6843006-5 (Version None)
Quarter: 2010Q3

REPORT INFORMATION
  Report Type: 
  Country: None (occurrence: None)
  Receive Date: 20100714
  Receipt Date: 20080104
  Transmission Date: 20110219
  Serious: No
  Sender: FDA-Public Use
  Company Number: US-PFIZER INC-2007065885

PATIENT
  Sex: Female
  Weight: 70.3 kg

DRUGS (8)
  1. CHANTIX [Suspect]
     Indication: SMOKING CESSATION THERAPY
     Dates: start: 20070805
  2. HYZAAR [Concomitant]
     Indication: HYPERTENSION
  3. ACETYLSALICYLIC ACID [Concomitant]
  4. PREVACID [Concomitant]
     Indication: GASTRIC DISORDER
  5. NITROTAB [Concomitant]
  6. VALIUM [Concomitant]
  7. AZELASTINE HCL [Concomitant]
     Indication: SINUS DISORDER
     Route: 045
  8. MUSCLE RELAXANTS [Concomitant]
     Indication: MUSCLE SPASMS

REACTIONS (15)
  - ABDOMINAL DISTENSION [None]
  - ABDOMINAL PAIN UPPER [None]
  - ASTHENIA [None]
  - DECREASED APPETITE [None]
  - DIZZINESS [None]
  - DRY MOUTH [None]
  - DYSPEPSIA [None]
  - FEELING ABNORMAL [None]
  - GASTRIC DISORDER [None]
  - MUSCLE SPASMS [None]
  - NAUSEA [None]
  - NERVOUSNESS [None]
  - PRESYNCOPE [None]
  - SINUSITIS [None]
  - STRESS [None]
